FAERS Safety Report 10729696 (Version 1)
Quarter: 2015Q1

REPORT INFORMATION
  Report Type: Spontaneous
  Country: US (occurrence: None)
  Receive Date: 20150121
  Receipt Date: 20150121
  Transmission Date: 20150721
  Serious: Yes (Hospitalization)
  Sender: FDA-Public Use
  Company Number: None

PATIENT
  Age: 72 Year
  Sex: Male

DRUGS (1)
  1. H.P. ACTHAR [Suspect]
     Active Substance: CORTICOTROPIN
     Indication: NEPHROTIC SYNDROME
     Dosage: ACTHAR HP GEL 0.5 ML, MONTHLY, INJECTION
     Dates: start: 20131114

REACTIONS (1)
  - Oedema [None]

NARRATIVE: CASE EVENT DATE: 20150108
